FAERS Safety Report 7865618-2 (Version None)
Quarter: 2011Q4

REPORT INFORMATION
  Report Type: 
  Country: None (occurrence: None)
  Receive Date: 20111028
  Receipt Date: 20110125
  Transmission Date: 20120403
  Serious: No
  Sender: FDA-Public Use
  Company Number: US-GLAXOSMITHKLINE-A0909132A

PATIENT
  Age: 63 Year
  Sex: Female

DRUGS (6)
  1. FLOVENT [Concomitant]
  2. AVALIDE [Concomitant]
  3. ADVAIR DISKUS 100/50 [Suspect]
     Indication: ASTHMA
     Dosage: 1PUFF TWICE PER DAY
     Route: 055
  4. PREMPRO [Concomitant]
  5. BECONASE AQ [Concomitant]
  6. DIURETIC [Concomitant]

REACTIONS (4)
  - DYSPNOEA [None]
  - PRODUCT QUALITY ISSUE [None]
  - DYSPNOEA EXERTIONAL [None]
  - THERAPEUTIC RESPONSE DECREASED [None]
